FAERS Safety Report 4899954-9 (Version None)
Quarter: 2006Q1

REPORT INFORMATION
  Report Type: 
  Country: None (occurrence: None)
  Receive Date: 20060201
  Receipt Date: 20060116
  Transmission Date: 20060701
  Serious: Yes (Other)
  Sender: FDA-Public Use
  Company Number: US200601002591

PATIENT
  Sex: Male

DRUGS (1)
  1. TADALAFIL(TADALAFIL) UNKNOWN [Suspect]
     Indication: ERECTILE DYSFUNCTION

REACTIONS (1)
  - OPTIC ISCHAEMIC NEUROPATHY [None]
